FAERS Safety Report 20200674 (Version 1)
Quarter: 2021Q4

REPORT INFORMATION
  Report Type: Spontaneous
  Country: CN (occurrence: CN)
  Receive Date: 20211217
  Receipt Date: 20211217
  Transmission Date: 20220304
  Serious: Yes (Other)
  Sender: FDA-Public Use
  Company Number: CN-GLAXOSMITHKLINE-CNCH2021GSK089513

PATIENT
  Age: 31 Day
  Sex: Female

DRUGS (1)
  1. IBUPROFEN [Suspect]
     Active Substance: IBUPROFEN
     Indication: Patent ductus arteriosus
     Dosage: UNK

REACTIONS (11)
  - Necrotising colitis [Recovered/Resolved]
  - Haematochezia [Recovered/Resolved]
  - Apnoea [Recovered/Resolved]
  - Pneumatosis intestinalis [Recovered/Resolved]
  - Haematochezia [Recovered/Resolved]
  - Ascites [Recovered/Resolved]
  - Small intestinal obstruction [Recovered/Resolved]
  - Abdominal distension [Recovered/Resolved]
  - Vomiting [Recovered/Resolved]
  - Temperature regulation disorder [Recovered/Resolved]
  - Oxygen saturation decreased [Recovered/Resolved]
